FAERS Safety Report 7990381-4 (Version None)
Quarter: 2011Q4

REPORT INFORMATION
  Report Type: 
  Country: None (occurrence: None)
  Receive Date: 20111219
  Receipt Date: 20101115
  Transmission Date: 20120403
  Serious: No
  Sender: FDA-Public Use
  Company Number: US-ASTRAZENECA-2010SE54515

PATIENT
  Age: 81 Year
  Sex: Female

DRUGS (2)
  1. CRESTOR [Suspect]
     Dosage: 5 MG (CUT 10 MG TABLETS IN HALF) DAILY
     Route: 048
  2. CRESTOR [Suspect]
     Route: 048
     Dates: start: 20100901

REACTIONS (2)
  - ALOPECIA [None]
  - WRONG TECHNIQUE IN DRUG USAGE PROCESS [None]
